FAERS Safety Report 16186026 (Version 1)
Quarter: 2019Q2

REPORT INFORMATION
  Report Type: Spontaneous
  Country: US (occurrence: US)
  Receive Date: 20190411
  Receipt Date: 20190411
  Transmission Date: 20190711
  Serious: No
  Sender: FDA-Public Use
  Company Number: US-TEVA-2019-US-1026659

PATIENT
  Sex: Female

DRUGS (2)
  1. ACTAVIS MICON 2% (MICONAZOLE) [Suspect]
     Active Substance: MICONAZOLE NITRATE
     Indication: VAGINAL DISORDER
     Route: 067
     Dates: start: 20190311
  2. ACTAVIS MICON 2% (MICONAZOLE) [Suspect]
     Active Substance: MICONAZOLE NITRATE
     Indication: VULVOVAGINAL BURNING SENSATION

REACTIONS (3)
  - Prescription drug used without a prescription [Unknown]
  - Condition aggravated [Unknown]
  - Vulvovaginal burning sensation [Unknown]
